FAERS Safety Report 9808627 (Version 1)
Quarter: 2014Q1

REPORT INFORMATION
  Report Type: Report from Study
  Country: US (occurrence: US)
  Receive Date: 20140110
  Receipt Date: 20140110
  Transmission Date: 20141002
  Serious: Yes (Death, Other)
  Sender: FDA-Public Use
  Company Number: US-ABBVIE-14P-163-1187654-00

PATIENT
  Sex: Male
  Weight: 45.4 kg

DRUGS (16)
  1. HUMIRA [Suspect]
     Indication: CROHN^S DISEASE
     Dates: start: 201306, end: 201308
  2. HUMIRA [Suspect]
     Dates: start: 20130901, end: 20131125
  3. TYLENOL [Concomitant]
     Indication: PAIN
  4. ALLOPURINOL [Concomitant]
     Indication: BLOOD URIC ACID
  5. ASPIRIN [Concomitant]
     Indication: CARDIAC DISORDER
  6. LASIX [Concomitant]
     Indication: LOCAL SWELLING
  7. GLIMEPIRIDE [Concomitant]
     Indication: DIABETES MELLITUS
  8. METOPROLOL [Concomitant]
     Indication: CARDIAC DISORDER
  9. SPIRONOLACTONE [Concomitant]
     Indication: CARDIAC DISORDER
  10. LISINOPRIL [Concomitant]
     Indication: HYPERTENSION
  11. MULTIVITAMIN [Concomitant]
     Indication: VITAMIN SUPPLEMENTATION
  12. NIACIN [Concomitant]
     Indication: BLOOD TRIGLYCERIDES
  13. FISH OIL [Concomitant]
     Indication: VITAMIN SUPPLEMENTATION
  14. PRAVASTATIN [Concomitant]
     Indication: BLOOD CHOLESTEROL INCREASED
  15. RANITIDINE [Concomitant]
     Indication: GASTRIC DISORDER
  16. TIMOLOL [Concomitant]
     Indication: GLAUCOMA

REACTIONS (6)
  - Cardiac disorder [Fatal]
  - Crohn^s disease [Fatal]
  - Sepsis [Fatal]
  - Fistula discharge [Not Recovered/Not Resolved]
  - Abdominal pain [Not Recovered/Not Resolved]
  - Implantable defibrillator insertion [Unknown]
